FAERS Safety Report 13620770 (Version 1)
Quarter: 2017Q2

REPORT INFORMATION
  Report Type: Spontaneous
  Country: NL (occurrence: NL)
  Receive Date: 20170607
  Receipt Date: 20170607
  Transmission Date: 20170830
  Serious: Yes (Other)
  Sender: FDA-Public Use
  Company Number: NL-PFIZER INC-2017242718

PATIENT
  Age: 34 Year
  Sex: Female
  Weight: 63 kg

DRUGS (5)
  1. EFFEXOR XR [Suspect]
     Active Substance: VENLAFAXINE HYDROCHLORIDE
     Indication: DEPRESSION
     Dosage: 37.5 MG, UNK
     Route: 048
     Dates: start: 201406, end: 20141231
  2. EFFEXOR XR [Suspect]
     Active Substance: VENLAFAXINE HYDROCHLORIDE
     Dosage: 75 MG, UNK
     Route: 048
     Dates: start: 201704
  3. EFFEXOR XR [Suspect]
     Active Substance: VENLAFAXINE HYDROCHLORIDE
     Dosage: 75 MG, 1X/DAY
     Route: 048
     Dates: start: 20150101, end: 20160818
  4. EFFEXOR XR [Suspect]
     Active Substance: VENLAFAXINE HYDROCHLORIDE
     Dosage: 37.5 MG, UNK
     Route: 048
     Dates: start: 20160819, end: 20161015
  5. EFFEXOR XR [Suspect]
     Active Substance: VENLAFAXINE HYDROCHLORIDE
     Dosage: 37.5 MG, UNK
     Route: 048
     Dates: start: 201704, end: 201704

REACTIONS (10)
  - Therapeutic response unexpected [Unknown]
  - Anger [Unknown]
  - Pre-existing condition improved [Unknown]
  - Weight increased [Not Recovered/Not Resolved]
  - Hypokinesia [Unknown]
  - Hypometabolism [Unknown]
  - Blood cholesterol increased [Unknown]
  - Autism spectrum disorder [Unknown]
  - Blood thyroid stimulating hormone increased [Unknown]
  - Fatigue [Unknown]

NARRATIVE: CASE EVENT DATE: 2014
